FAERS Safety Report 5126430-0 (Version None)
Quarter: 2006Q4

REPORT INFORMATION
  Report Type: 
  Country: None (occurrence: None)
  Receive Date: 20061010
  Receipt Date: 20060926
  Transmission Date: 20070319
  Serious: Yes (Hospitalization)
  Sender: FDA-Public Use
  Company Number: CIP06002196

PATIENT
  Age: 82 Year
  Sex: Female

DRUGS (8)
  1. ACTONEL [Suspect]
     Dosage: 35 MG, ONCE WEEKLY, ORAL
     Route: 048
     Dates: end: 20030101
  2. ACTONEL [Suspect]
     Dosage: 35 MG, ONCE WEEKLY, ORAL
     Route: 048
     Dates: end: 20060801
  3. ACTONEL [Suspect]
     Dosage: 35 MG, ONCE WEEKLY, ORAL
     Route: 048
     Dates: start: 20060901
  4. COZAAR [Concomitant]
  5. ASPIRIN [Concomitant]
  6. POTASSIUM (POTASSIUM) [Concomitant]
  7. LASIX (FUROSEMIDE SODIUM, FUROSEMIDE) [Concomitant]
  8. PRAVACHOL [Concomitant]

REACTIONS (3)
  - CHOLECYSTECTOMY [None]
  - MYOCARDIAL INFARCTION [None]
  - RENAL IMPAIRMENT [None]
